FAERS Safety Report 5168221-0 (Version None)
Quarter: 2006Q4

REPORT INFORMATION
  Report Type: 
  Country: None (occurrence: None)
  Receive Date: 20061208
  Receipt Date: 20061206
  Transmission Date: 20070319
  Serious: Yes (Hospitalization)
  Sender: FDA-Public Use
  Company Number: US-GLAXOSMITHKLINE-A0630795A

PATIENT
  Sex: Male

DRUGS (1)
  1. PAXIL [Suspect]
     Indication: DEPRESSION
     Route: 048

REACTIONS (8)
  - ABNORMAL BEHAVIOUR [None]
  - AGGRESSION [None]
  - BRAIN DAMAGE [None]
  - FOAMING AT MOUTH [None]
  - HALLUCINATION, AUDITORY [None]
  - HEAD INJURY [None]
  - INTENTIONAL OVERDOSE [None]
  - PNEUMONIA [None]
